FAERS Safety Report 9681051 (Version 1)
Quarter: 2013Q4

REPORT INFORMATION
  Report Type: Report from Study
  Country: VE (occurrence: VE)
  Receive Date: 20131111
  Receipt Date: 20131111
  Transmission Date: 20140711
  Serious: Yes (Hospitalization)
  Sender: FDA-Public Use
  Company Number: PHHY2013VE127438

PATIENT
  Age: 61 Year
  Sex: Female

DRUGS (3)
  1. ACLASTA [Suspect]
     Indication: OSTEOPOROSIS
     Dosage: 5 MG, ANNUALLY
     Route: 042
     Dates: start: 20110905
  2. IDENA [Concomitant]
     Dosage: 1 DF, MONTHLY
  3. CALCIUM [Concomitant]
     Dosage: 1 DF, QD

REACTIONS (3)
  - Device related infection [Recovering/Resolving]
  - Femur fracture [Recovering/Resolving]
  - Fall [Recovering/Resolving]
